FAERS Safety Report 8174519-4 (Version None)
Quarter: 2012Q1

REPORT INFORMATION
  Report Type: 
  Country: None (occurrence: None)
  Receive Date: 20120229
  Receipt Date: 20120227
  Transmission Date: 20120608
  Serious: Yes (Hospitalization)
  Sender: FDA-Public Use
  Company Number: US-ABBOTT-12P-163-0906219-00

PATIENT
  Sex: Male
  Weight: 63.56 kg

DRUGS (6)
  1. ZOSYN [Suspect]
     Indication: GASTROENTERITIS VIRAL
     Route: 042
     Dates: start: 20120121, end: 20120126
  2. AMOXICILLIN [Suspect]
     Indication: GASTROENTERITIS VIRAL
     Route: 048
     Dates: start: 20120126
  3. NEURONTIN [Concomitant]
     Indication: BACK DISORDER
     Dosage: 2-3 PER DAY
  4. HUMIRA [Suspect]
     Indication: CROHN'S DISEASE
     Route: 058
     Dates: start: 20110801
  5. AZITHROMYCIN [Suspect]
     Indication: GASTROENTERITIS VIRAL
     Route: 042
     Dates: start: 20120121, end: 20120126
  6. AZITHROMYCIN [Suspect]
     Route: 048
     Dates: start: 20120126

REACTIONS (4)
  - DIARRHOEA [None]
  - HYPERTENSION [None]
  - GASTROENTERITIS VIRAL [None]
  - PYREXIA [None]
